FAERS Safety Report 13910562 (Version 1)
Quarter: 2017Q3

REPORT INFORMATION
  Report Type: Spontaneous
  Country: IT (occurrence: IT)
  Receive Date: 20170828
  Receipt Date: 20170828
  Transmission Date: 20171127
  Serious: Yes (Other)
  Sender: FDA-Public Use
  Company Number: IT-PFIZER INC-2017363958

PATIENT
  Sex: Female

DRUGS (18)
  1. PACLITAXEL. [Suspect]
     Active Substance: PACLITAXEL
     Dosage: UNK
     Dates: start: 20151127
  2. TRASTUZUMAB. [Suspect]
     Active Substance: TRASTUZUMAB
     Dosage: UNK
     Dates: start: 20151127
  3. FASLODEX [Concomitant]
     Active Substance: FULVESTRANT
     Indication: MENOPAUSE
     Dosage: 250 MG (1FL) FOR EVERY 28 DAYS
     Route: 030
     Dates: start: 20120508
  4. CARBOPLATIN. [Suspect]
     Active Substance: CARBOPLATIN
     Dosage: UNK
  5. PACLITAXEL. [Suspect]
     Active Substance: PACLITAXEL
     Dosage: UNK, CYCLIC (WEEKLY STARTED, 6 CYCLES)
     Dates: start: 20111209, end: 20120506
  6. ERIBULIN [Suspect]
     Active Substance: ERIBULIN
     Dosage: AT 0.97 MG / M 2
  7. TRASTUZUMAB. [Suspect]
     Active Substance: TRASTUZUMAB
     Indication: BREAST CANCER METASTATIC
     Dosage: UNK
  8. ZOMETA [Concomitant]
     Active Substance: ZOLEDRONIC ACID
     Dosage: UNK
     Dates: start: 20130616
  9. PERTUZUMAB. [Suspect]
     Active Substance: PERTUZUMAB
     Indication: BREAST CANCER METASTATIC
     Dosage: UNK
     Dates: start: 20150930
  10. TRASTUZUMAB EMTANSINE [Suspect]
     Active Substance: ADO-TRASTUZUMAB EMTANSINE
     Indication: BREAST CANCER METASTATIC
  11. CAPECITABINE. [Suspect]
     Active Substance: CAPECITABINE
     Dosage: 1000 MG/M2, CYCLIC (DAILY FOR 14 DAYS EVERY 21)
     Dates: start: 20130522, end: 20150308
  12. HERCEPTIN [Suspect]
     Active Substance: TRASTUZUMAB
     Indication: BREAST CANCER METASTATIC
     Dosage: UNK
     Dates: start: 20150903
  13. AROMASIN [Concomitant]
     Active Substance: EXEMESTANE
  14. CAELYX [Concomitant]
     Active Substance: DOXORUBICIN HYDROCHLORIDE
  15. ESTRAMUSTINE [Concomitant]
     Active Substance: ESTRAMUSTINE
     Dosage: 240 MG, DAILY
     Dates: start: 201701
  16. CARBOPLATIN. [Suspect]
     Active Substance: CARBOPLATIN
     Dosage: UNK
     Dates: start: 20151127
  17. DOCETAXEL. [Suspect]
     Active Substance: DOCETAXEL
     Dosage: UNK
     Dates: start: 20150903
  18. ERIBULIN [Suspect]
     Active Substance: ERIBULIN
     Dosage: UNK, CYCLIC
     Dates: start: 20160531

REACTIONS (7)
  - Neoplasm progression [Unknown]
  - Osteonecrosis of jaw [Unknown]
  - Epistaxis [Unknown]
  - Diarrhoea [Unknown]
  - Palmar-plantar erythrodysaesthesia syndrome [Unknown]
  - Pain [Unknown]
  - Neutropenia [Unknown]

NARRATIVE: CASE EVENT DATE: 201407
